FAERS Safety Report 11189054 (Version 4)
Quarter: 2019Q4

REPORT INFORMATION
  Report Type: Report from Study
  Country: US (occurrence: US)
  Receive Date: 20150615
  Receipt Date: 20191122
  Transmission Date: 20200122
  Serious: Yes (Hospitalization, Other)
  Sender: FDA-Public Use
  Company Number: US-SA-2015SA081667

PATIENT
  Age: 77 Year
  Sex: Female

DRUGS (4)
  1. INSULIN GLARGINE [Suspect]
     Active Substance: INSULIN GLARGINE
     Dosage: 35 DF,HS
     Route: 065
  2. INSULIN GLARGINE [Suspect]
     Active Substance: INSULIN GLARGINE
     Indication: DIABETES MELLITUS
     Dosage: 50 U, HS (BEDTIME)
     Route: 065
  3. INSULIN GLARGINE [Suspect]
     Active Substance: INSULIN GLARGINE
     Dosage: 50 DF,HS
     Route: 065
  4. INSULIN GLARGINE [Suspect]
     Active Substance: INSULIN GLARGINE
     Dosage: 40 DF,QD
     Route: 065

REACTIONS (9)
  - Pneumonia [Unknown]
  - Localised infection [Recovering/Resolving]
  - Visual impairment [Unknown]
  - Pulmonary thrombosis [Unknown]
  - Spinal cord neoplasm [Unknown]
  - Blood potassium abnormal [Unknown]
  - Blood glucose increased [Unknown]
  - Diabetic coma [Unknown]
  - Thrombosis [Unknown]

NARRATIVE: CASE EVENT DATE: 2016
